FAERS Safety Report 21258671 (Version 1)
Quarter: 2022Q3

REPORT INFORMATION
  Report Type: Spontaneous
  Country: US (occurrence: None)
  Receive Date: 20220825
  Receipt Date: 20220825
  Transmission Date: 20221026
  Serious: Yes (Other)
  Sender: FDA-Public Use
  Company Number: None

PATIENT
  Age: 4 Month
  Sex: Female
  Weight: 6.84 kg

DRUGS (3)
  1. BABY TEETHING (HYLAND HOMEOPATHIC) [Suspect]
     Active Substance: HOMEOPATHICS
     Indication: Teething
     Route: 060
     Dates: start: 20220822
  2. BABY TEETHING (HYLAND HOMEOPATHIC) [Suspect]
     Active Substance: HOMEOPATHICS
     Indication: Irritability
  3. BABY TEETHING (HYLAND HOMEOPATHIC) [Suspect]
     Active Substance: HOMEOPATHICS
     Indication: Insomnia

REACTIONS (2)
  - Vomiting [None]
  - Product formulation issue [None]

NARRATIVE: CASE EVENT DATE: 20220822
